FAERS Safety Report 7788730-5 (Version None)
Quarter: 2011Q3

REPORT INFORMATION
  Report Type: 
  Country: None (occurrence: None)
  Receive Date: 20110930
  Receipt Date: 20110920
  Transmission Date: 20111222
  Serious: Yes (Other)
  Sender: FDA-Public Use
  Company Number: US-US-EMD SERONO, INC.-7084779

PATIENT
  Sex: Female

DRUGS (1)
  1. REBIF [Suspect]
     Indication: MULTIPLE SCLEROSIS
     Route: 058
     Dates: start: 20091111

REACTIONS (5)
  - INJECTION SITE ERYTHEMA [None]
  - DISTURBANCE IN ATTENTION [None]
  - DIZZINESS [None]
  - HIDRADENITIS [None]
  - MUSCLE SPASMS [None]
